FAERS Safety Report 24315486 (Version 1)
Quarter: 2024Q3

REPORT INFORMATION
  Report Type: Spontaneous
  Country: IT (occurrence: IT)
  Receive Date: 20240913
  Receipt Date: 20240913
  Transmission Date: 20241017
  Serious: Yes (Other)
  Sender: AUROBINDO
  Company Number: IT-SAMSUNG BIOEPIS-SB-2023-27626

PATIENT
  Age: 15 Year
  Sex: Male

DRUGS (2)
  1. IRINOTECAN [Suspect]
     Active Substance: IRINOTECAN
     Indication: Astrocytoma, low grade
     Dosage: 125 MILLIGRAM/SQ. METER,FOR TWENTY FOUR CYCLES
     Route: 042
     Dates: start: 202001, end: 202112
  2. BEVACIZUMAB [Suspect]
     Active Substance: BEVACIZUMAB
     Indication: Astrocytoma, low grade
     Dosage: 10 MILLIGRAM/KILOGRAM,FOR TWENTY FOUR CYCLES
     Route: 042
     Dates: start: 202001, end: 202112

REACTIONS (3)
  - Systolic hypertension [Unknown]
  - Off label use [Unknown]
  - Drug effective for unapproved indication [Unknown]
